FAERS Safety Report 8470999-5 (Version None)
Quarter: 2012Q2

REPORT INFORMATION
  Report Type: 
  Country: None (occurrence: None)
  Receive Date: 20120627
  Receipt Date: 20120620
  Transmission Date: 20120825
  Serious: Yes (Hospitalization)
  Sender: FDA-Public Use
  Company Number: DE-ELI_LILLY_AND_COMPANY-DE201206006363

PATIENT
  Sex: Female

DRUGS (4)
  1. HEPARIN [Concomitant]
  2. MARCUMAR [Concomitant]
     Dosage: UNK
  3. FORTEO [Suspect]
     Indication: OSTEOPOROSIS
     Dosage: UNK, QD
     Route: 058
     Dates: start: 20110616
  4. CALCIUM [Concomitant]
     Dosage: UNK

REACTIONS (2)
  - BENIGN NEOPLASM OF BLADDER [None]
  - BLOOD URINE PRESENT [None]
